FAERS Safety Report 21394352 (Version 1)
Quarter: 2022Q3

REPORT INFORMATION
  Report Type: Spontaneous
  Country: NL (occurrence: NL)
  Receive Date: 20220930
  Receipt Date: 20220930
  Transmission Date: 20221027
  Serious: Yes (Life-Threatening, Hospitalization, Other)
  Sender: FDA-Public Use
  Company Number: NL-LRB-00829697

PATIENT
  Sex: Male
  Weight: 95 kg

DRUGS (1)
  1. CIPROFLOXACIN [Suspect]
     Active Substance: CIPROFLOXACIN
     Indication: Urinary tract infection
     Dosage: 1 DOSAGE FORM (2 KEER PER DAG)
     Route: 065
     Dates: start: 20220829, end: 20220906

REACTIONS (7)
  - Respiration abnormal [Recovering/Resolving]
  - Monoparesis [Recovering/Resolving]
  - Diaphragm muscle weakness [Recovering/Resolving]
  - Ataxia [Recovering/Resolving]
  - Guillain-Barre syndrome [Recovering/Resolving]
  - Ileus [Recovering/Resolving]
  - Paresis [Recovering/Resolving]
